FAERS Safety Report 5569277-3 (Version None)
Quarter: 2007Q4

REPORT INFORMATION
  Report Type: 
  Country: None (occurrence: None)
  Receive Date: 20071220
  Receipt Date: 20071009
  Transmission Date: 20080405
  Serious: No
  Sender: FDA-Public Use
  Company Number: A0686665A

PATIENT
  Age: 70 Year

DRUGS (4)
  1. AVODART [Suspect]
     Dosage: .5MG PER DAY
     Route: 048
     Dates: start: 20071001
  2. GLUCOTROL [Concomitant]
  3. PRILOSEC [Concomitant]
  4. ZESTRIL [Concomitant]

REACTIONS (1)
  - DRUG INEFFECTIVE [None]
